FAERS Safety Report 12991756 (Version 2)
Quarter: 2017Q1

REPORT INFORMATION
  Report Type: Spontaneous
  Country: US (occurrence: US)
  Receive Date: 20161201
  Receipt Date: 20170103
  Transmission Date: 20170428
  Serious: Yes (Hospitalization)
  Sender: FDA-Public Use
  Company Number: US-IMPAX LABORATORIES, INC-2016-IPXL-02226

PATIENT
  Age: 21 Year
  Sex: Female

DRUGS (2)
  1. ISOPROTERENOL [Suspect]
     Active Substance: ISOPROTERENOL
     Indication: UNMASKING OF PREVIOUSLY UNIDENTIFIED DISEASE
     Dosage: UNK
     Route: 065
  2. ADRENACLICK [Suspect]
     Active Substance: EPINEPHRINE
     Indication: UNMASKING OF PREVIOUSLY UNIDENTIFIED DISEASE
     Dosage: UNK
     Route: 065

REACTIONS (1)
  - Stress cardiomyopathy [Recovered/Resolved]
